FAERS Safety Report 11393639 (Version 4)
Quarter: 2017Q4

REPORT INFORMATION
  Report Type: Report from Study
  Country: US (occurrence: US)
  Receive Date: 20150819
  Receipt Date: 20171215
  Transmission Date: 20180320
  Serious: Yes (Other)
  Sender: FDA-Public Use
  Company Number: US-ROCHE-1622014

PATIENT
  Age: 13 Year
  Sex: Female
  Weight: 32.3 kg

DRUGS (5)
  1. BEVACIZUMAB. [Suspect]
     Active Substance: BEVACIZUMAB
     Indication: PINEALOBLASTOMA
     Dosage: 10 MG/KG/DOSE OVER 30-90 MINUTES.?LAST DOSE ADMINISTERED: 29/JUN/2015.
     Route: 042
     Dates: start: 20150629
  2. TEMOZOLOMIDE. [Suspect]
     Active Substance: TEMOZOLOMIDE
     Indication: PINEALOBLASTOMA
     Dosage: 150 MG/M2/DOSE OR 5 MG/KG/DOSE (FOR PATIENTS WITH BSA { 0.5 M2) ON DAYS 1-5
     Route: 048
     Dates: start: 20150629
  3. LOPERAMIDE [Concomitant]
     Active Substance: LOPERAMIDE
     Indication: DIARRHOEA
  4. IRINOTECAN [Suspect]
     Active Substance: IRINOTECAN
     Indication: PINEALOBLASTOMA
     Dosage: LAST DOSE ADMINISTERED ON 03/JUL/2015.?50 MG/M2/DOSE OVER 90 MINUTES
     Route: 042
  5. CYPROHEPTADINE HCL [Concomitant]
     Active Substance: CYPROHEPTADINE HYDROCHLORIDE

REACTIONS (11)
  - Hyperuricaemia [Unknown]
  - Platelet count decreased [Unknown]
  - Neutrophil count decreased [Unknown]
  - White blood cell count decreased [Unknown]
  - Aspartate aminotransferase increased [Unknown]
  - Anaemia [Unknown]
  - Diarrhoea [Unknown]
  - Alanine aminotransferase increased [Unknown]
  - Alanine aminotransferase increased [Unknown]
  - Hypokalaemia [Unknown]
  - Vomiting [Unknown]

NARRATIVE: CASE EVENT DATE: 20150708
